FAERS Safety Report 13445533 (Version 1)
Quarter: 2017Q2

REPORT INFORMATION
  Report Type: Spontaneous
  Country: US (occurrence: US)
  Receive Date: 20170415
  Receipt Date: 20170415
  Transmission Date: 20170830
  Serious: No
  Sender: FDA-Public Use
  Company Number: US-BION-005814

PATIENT
  Sex: Female

DRUGS (1)
  1. NAPROXEN SODIUM SOFTGEL UNKNOWN [Suspect]
     Active Substance: NAPROXEN SODIUM
     Indication: PRODUCT USED FOR UNKNOWN INDICATION
     Dosage: TOOK ONE SOFTGEL

REACTIONS (5)
  - Product odour abnormal [Unknown]
  - Poor quality drug administered [Not Recovered/Not Resolved]
  - Product physical issue [Unknown]
  - Product taste abnormal [Unknown]
  - Product leakage [Unknown]
